FAERS Safety Report 5846128-0 (Version None)
Quarter: 2008Q3

REPORT INFORMATION
  Report Type: 
  Country: None (occurrence: None)
  Receive Date: 20080814
  Receipt Date: 20080806
  Transmission Date: 20090109
  Serious: Yes (Death)
  Sender: FDA-Public Use
  Company Number: US-GENENTECH-256205

PATIENT
  Sex: Male
  Weight: 2.255 kg

DRUGS (19)
  1. RITUXIMAB [Suspect]
     Indication: SYSTEMIC LUPUS ERYTHEMATOSUS
     Dosage: UNK, UNK
     Route: 064
  2. TYLENOL (CAPLET) [Concomitant]
     Indication: HEADACHE
     Dosage: 500 MG, QD
     Route: 064
     Dates: start: 20060916, end: 20070613
  3. CELLCEPT [Concomitant]
     Indication: SYSTEMIC LUPUS ERYTHEMATOSUS
     Dosage: UNK, UNK
     Route: 064
     Dates: end: 20070613
  4. FOLIC ACID [Concomitant]
     Indication: VITAMIN SUPPLEMENTATION
     Route: 064
     Dates: start: 20070916
  5. COUMADIN [Concomitant]
     Indication: ANTIPHOSPHOLIPID SYNDROME
     Dosage: UNK, UNK
     Route: 064
     Dates: start: 20060402, end: 20070611
  6. HEPARIN [Concomitant]
     Indication: ANTICOAGULANT THERAPY
     Route: 064
     Dates: start: 20070612, end: 20070612
  7. LORTAB [Concomitant]
     Indication: PAIN
     Dosage: UNK, UNK
     Route: 064
     Dates: start: 20070611, end: 20070613
  8. LOVENOX [Concomitant]
     Indication: THROMBOSIS PROPHYLAXIS
     Route: 064
     Dates: start: 20070612, end: 20070613
  9. ZOFRAN [Concomitant]
     Indication: NAUSEA
     Route: 064
     Dates: start: 20070611, end: 20070613
  10. LABETALOL HCL [Concomitant]
     Indication: DRUG USE FOR UNKNOWN INDICATION
     Dosage: UNK, UNK
     Route: 064
     Dates: start: 20071017
  11. PROTONIX [Concomitant]
     Indication: DRUG USE FOR UNKNOWN INDICATION
     Route: 064
  12. HYDROCORTISONE [Concomitant]
     Indication: SYSTEMIC LUPUS ERYTHEMATOSUS
     Dosage: 100 MG, SINGLE
     Route: 064
     Dates: start: 20070611, end: 20070611
  13. PREDNISONE TAB [Concomitant]
     Indication: SYSTEMIC LUPUS ERYTHEMATOSUS
     Dosage: UNK, UNK
     Route: 064
     Dates: start: 20070401, end: 20071209
  14. PROCARDIA [Concomitant]
     Indication: PREMATURE LABOUR
     Dosage: UNK, UNK
     Route: 064
     Dates: start: 20071207, end: 20071208
  15. BETAMETHASONE [Concomitant]
     Indication: PREMATURE LABOUR
     Route: 064
     Dates: start: 20071207, end: 20071208
  16. STEROIDS (UNK INGREDIENTS) [Concomitant]
     Indication: DRUG USE FOR UNKNOWN INDICATION
     Route: 064
  17. SURVANTA [Concomitant]
     Indication: DRUG USE FOR UNKNOWN INDICATION
  18. OXYGEN [Concomitant]
     Indication: RESPIRATORY DISTRESS
  19. SYNAGIS [Concomitant]
     Indication: PROPHYLAXIS
     Dosage: UNK
     Dates: start: 20080105

REACTIONS (1)
  - MULTI-ORGAN FAILURE [None]
